FAERS Safety Report 9308350 (Version 1)
Quarter: 2013Q2

REPORT INFORMATION
  Report Type: Spontaneous
  Country: JP (occurrence: JP)
  Receive Date: 20130524
  Receipt Date: 20130524
  Transmission Date: 20140414
  Serious: Yes (Hospitalization)
  Sender: FDA-Public Use
  Company Number: JP-GLAXOSMITHKLINE-B0892636A

PATIENT
  Age: 5 Decade
  Sex: Female

DRUGS (4)
  1. LAMICTAL [Suspect]
     Indication: BIPOLAR DISORDER
     Dosage: 200MG TWICE PER DAY
     Route: 048
     Dates: end: 201305
  2. LAMICTAL [Suspect]
     Indication: BIPOLAR DISORDER
     Route: 048
     Dates: start: 201305, end: 201305
  3. MIRTAZAPINE [Concomitant]
     Dosage: 15MG PER DAY
     Route: 048
     Dates: end: 201305
  4. DULOXETINE HYDROCHLORIDE [Concomitant]
     Dosage: 60MG PER DAY
     Route: 048
     Dates: end: 201305

REACTIONS (6)
  - Serotonin syndrome [Recovered/Resolved]
  - Neuroleptic malignant syndrome [Recovered/Resolved]
  - Hypoaesthesia [Recovered/Resolved]
  - Pyrexia [Recovered/Resolved]
  - Musculoskeletal stiffness [Recovered/Resolved]
  - Overdose [Unknown]
